FAERS Safety Report 19712528 (Version 1)
Quarter: 2021Q3

REPORT INFORMATION
  Report Type: Spontaneous
  Country: NL (occurrence: NL)
  Receive Date: 20210817
  Receipt Date: 20210817
  Transmission Date: 20211014
  Serious: Yes (Hospitalization, Other)
  Sender: FDA-Public Use
  Company Number: NVSC2021NL184220

PATIENT
  Age: 49 Year
  Sex: Female
  Weight: 51 kg

DRUGS (2)
  1. PANADOL PLUS [Concomitant]
     Active Substance: ACETAMINOPHEN\CAFFEINE
     Indication: PRODUCT USED FOR UNKNOWN INDICATION
     Dosage: UNK (OMHULDE TABLET, 500/65 MG (MILLIGRAM))
     Route: 065
  2. CIPROFLOXACIN. [Suspect]
     Active Substance: CIPROFLOXACIN
     Indication: OTORRHOEA
     Dosage: 750 MG, Q12H (2 X DAAGS 1 STUK)
     Route: 065
     Dates: start: 202103, end: 20210408

REACTIONS (7)
  - Faeces discoloured [Unknown]
  - Head discomfort [Unknown]
  - Diarrhoea [Unknown]
  - Presyncope [Unknown]
  - Dizziness [Unknown]
  - Gastrointestinal haemorrhage [Unknown]
  - Gait disturbance [Unknown]

NARRATIVE: CASE EVENT DATE: 20210328
